FAERS Safety Report 14385400 (Version 3)
Quarter: 2018Q3

REPORT INFORMATION
  Report Type: Spontaneous
  Country: US (occurrence: US)
  Receive Date: 20180115
  Receipt Date: 20180716
  Transmission Date: 20181010
  Serious: Yes (Other)
  Sender: FDA-Public Use
  Company Number: US-SA-2016SA232559

PATIENT
  Age: 53 Year
  Sex: Female
  Weight: 81.6 kg

DRUGS (9)
  1. DOXORUBICIN [Suspect]
     Active Substance: DOXORUBICIN
  2. PERTUZUMAB. [Concomitant]
     Active Substance: PERTUZUMAB
  3. LEVEMIR [Concomitant]
     Active Substance: INSULIN DETEMIR
  4. NEOSAR [Suspect]
     Active Substance: CYCLOPHOSPHAMIDE
  5. TAXOTERE [Suspect]
     Active Substance: DOCETAXEL
     Dosage: 20 DF,Q3W
     Route: 042
     Dates: start: 20140410, end: 20140410
  6. TAXOTERE [Suspect]
     Active Substance: DOCETAXEL
     Indication: BREAST CANCER FEMALE
     Dosage: 20 DF,Q3W
     Route: 042
     Dates: start: 20140130, end: 20140130
  7. HERCEPTIN [Concomitant]
     Active Substance: TRASTUZUMAB
  8. LISINOPRIL. [Concomitant]
     Active Substance: LISINOPRIL
  9. METFORMIN HYDROCHLORIDE. [Concomitant]
     Active Substance: METFORMIN HYDROCHLORIDE

REACTIONS (6)
  - Psychological trauma [Unknown]
  - Anxiety [Unknown]
  - Alopecia [Recovering/Resolving]
  - Pain [Unknown]
  - Emotional distress [Unknown]
  - Impaired quality of life [Unknown]

NARRATIVE: CASE EVENT DATE: 201410
